FAERS Safety Report 7324041-X (Version None)
Quarter: 2011Q1

REPORT INFORMATION
  Report Type: 
  Country: None (occurrence: None)
  Receive Date: 20110217
  Receipt Date: 20110209
  Transmission Date: 20110831
  Serious: Yes (Other)
  Sender: FDA-Public Use
  Company Number: 008538

PATIENT
  Sex: Female
  Weight: 73.2 kg

DRUGS (9)
  1. FOLIC ACID [Concomitant]
  2. IBUPROFEN [Concomitant]
  3. VITAMIN B6 [Concomitant]
  4. ACYCLOVIR [Concomitant]
  5. CALCIUM [Concomitant]
  6. METHOTREXATE [Concomitant]
  7. ISONIAZID [Concomitant]
  8. CERTOLIZUMAB PEGOL [Suspect]
     Indication: RHEUMATOID ARTHRITIS
     Dosage: 400 MG 1X2 WEEKS, SUBCUTANEOUS
     Route: 058
     Dates: start: 20091112
  9. MULTI-VITAMIN [Concomitant]

REACTIONS (1)
  - SQUAMOUS CELL CARCINOMA OF SKIN [None]
